FAERS Safety Report 5022039-8 (Version None)
Quarter: 2006Q2

REPORT INFORMATION
  Report Type: 
  Country: None (occurrence: None)
  Receive Date: 20060605
  Receipt Date: 20060522
  Transmission Date: 20061013
  Serious: Yes (Hospitalization)
  Sender: FDA-Public Use
  Company Number: 2006066883

PATIENT
  Sex: Female

DRUGS (3)
  1. ZELDOX [Suspect]
     Indication: SCHIZOPHRENIA, PARANOID TYPE
     Dosage: 140 MG (1 IN 1 D), ORAL
     Route: 048
     Dates: start: 20060308, end: 20060315
  2. HALDOL [Suspect]
     Indication: SCHIZOPHRENIA, PARANOID TYPE
     Dosage: 20 MG (DAILY: EVERY DAY, INTRAVENOUS; 10 MG (DAILY: EVERY DAY), ORAL
     Route: 042
     Dates: start: 20060224, end: 20060305
  3. HALDOL [Suspect]
     Indication: SCHIZOPHRENIA, PARANOID TYPE
     Dosage: 20 MG (DAILY: EVERY DAY, INTRAVENOUS; 10 MG (DAILY: EVERY DAY), ORAL
     Route: 042
     Dates: start: 20060306, end: 20060309

REACTIONS (2)
  - OROPHARYNGEAL SPASM [None]
  - PARKINSONISM [None]
